FAERS Safety Report 9702019 (Version 1)
Quarter: 2013Q4

REPORT INFORMATION
  Report Type: Spontaneous
  Country: CN (occurrence: CN)
  Receive Date: 20131121
  Receipt Date: 20131121
  Transmission Date: 20140711
  Serious: Yes (Hospitalization)
  Sender: FDA-Public Use
  Company Number: CN-BAYER-2013-139193

PATIENT
  Age: 49 Year
  Sex: Male
  Weight: 85 kg

DRUGS (3)
  1. AVELOX [Suspect]
     Indication: ANTI-INFECTIVE THERAPY
     Dosage: .4 G, QD
     Route: 041
     Dates: start: 20120210, end: 20120212
  2. CEFEPIME [Concomitant]
     Dosage: UNK
     Dates: end: 20130212
  3. LINEZOLID [Concomitant]
     Dosage: UNK
     Dates: end: 20130212

REACTIONS (2)
  - Aggression [Recovered/Resolved]
  - Confusional state [Recovered/Resolved]
